FAERS Safety Report 11217296 (Version 1)
Quarter: 2015Q2

REPORT INFORMATION
  Report Type: Spontaneous
  Country: IN (occurrence: IN)
  Receive Date: 20150625
  Receipt Date: 20150625
  Transmission Date: 20150821
  Serious: Yes (Other)
  Sender: FDA-Public Use
  Company Number: IN-MACLEODS PHARMACEUTICALS US LTD-MAC2015001815

PATIENT

DRUGS (12)
  1. HALOPERIDOL. [Suspect]
     Active Substance: HALOPERIDOL
     Dosage: 10 UNK, UNK
     Route: 048
  2. OLANZAPINE 5MG DISINTEGRATING TABLET [Suspect]
     Active Substance: OLANZAPINE
     Dosage: 10 MG
     Route: 065
  3. LEVOFLOXACIN. [Concomitant]
     Active Substance: LEVOFLOXACIN
     Indication: TUBERCULOSIS
     Dosage: 750 MG, UNK
     Route: 065
  4. HALOPERIDOL. [Suspect]
     Active Substance: HALOPERIDOL
     Indication: PRODUCT USED FOR UNKNOWN INDICATION
     Dosage: 1.5 MG, UNK
     Route: 048
  5. OLANZAPINE 5MG DISINTEGRATING TABLET [Suspect]
     Active Substance: OLANZAPINE
     Indication: PSYCHOTIC DISORDER
     Dosage: 5 MG, UNK
     Route: 048
  6. TRIHEXYPHENIDYL [Suspect]
     Active Substance: TRIHEXYPHENIDYL
     Dosage: 4 UNK, UNK
     Route: 048
  7. KANAMYCIN [Concomitant]
     Active Substance: KANAMYCIN\KANAMYCIN A SULFATE
     Indication: TUBERCULOSIS
     Dosage: 500 MG, UNK
     Route: 065
  8. TRIHEXYPHENIDYL [Suspect]
     Active Substance: TRIHEXYPHENIDYL
     Indication: PRODUCT USED FOR UNKNOWN INDICATION
     Dosage: 2 MG, UNK
     Route: 048
  9. CYCLOSERINE. [Suspect]
     Active Substance: CYCLOSERINE
     Indication: TUBERCULOSIS
     Dosage: 750 MG, UNK
     Route: 065
  10. OLANZAPINE 5MG DISINTEGRATING TABLET [Suspect]
     Active Substance: OLANZAPINE
     Dosage: 30 MG
     Route: 048
  11. ETHIONAMIDE [Concomitant]
     Active Substance: ETHIONAMIDE
     Indication: TUBERCULOSIS
     Dosage: 500 MG, UNK
     Route: 065
  12. PYRIDOXINE [Concomitant]
     Active Substance: PYRIDOXINE
     Indication: TUBERCULOSIS
     Dosage: 100 MG, UNK
     Route: 048

REACTIONS (14)
  - Psychotic disorder [Recovering/Resolving]
  - Mutism [Recovering/Resolving]
  - Muscle rigidity [Recovering/Resolving]
  - Eating disorder [Recovering/Resolving]
  - Extrapyramidal disorder [Recovering/Resolving]
  - Abnormal behaviour [Recovering/Resolving]
  - Delusion [Recovering/Resolving]
  - Tremor [Recovering/Resolving]
  - Muscle rigidity [None]
  - Akathisia [Recovering/Resolving]
  - Dysphagia [Recovering/Resolving]
  - Neuroleptic malignant syndrome [Recovering/Resolving]
  - Dystonia [Recovering/Resolving]
  - Parkinsonism [Recovering/Resolving]
